FAERS Safety Report 5031453-6 (Version None)
Quarter: 2006Q2

REPORT INFORMATION
  Report Type: 
  Country: None (occurrence: None)
  Receive Date: 20060504
  Receipt Date: 20060213
  Transmission Date: 20061013
  Serious: Yes (Other)
  Sender: FDA-Public Use
  Company Number: SGB1-2006-00005

PATIENT
  Age: 61 Year
  Sex: Female
  Weight: 72.6 kg

DRUGS (5)
  1. ANAGRELIDE HCL [Suspect]
     Indication: ESSENTIAL THROMBOCYTHAEMIA
     Dosage: 3 MG, DAILY
  2. HYDROXYUREA [Concomitant]
  3. WARFARIN SODIUM [Concomitant]
  4. CLOPIDOGREL [Concomitant]
  5. GABAPENTIN [Concomitant]

REACTIONS (1)
  - GASTRITIS HAEMORRHAGIC [None]
